APPROVED DRUG PRODUCT: XCOPRI
Active Ingredient: CENOBAMATE
Strength: 50MG
Dosage Form/Route: TABLET;ORAL
Application: N212839 | Product #003
Applicant: SK LIFE SCIENCE INC
Approved: Mar 10, 2020 | RLD: Yes | RS: No | Type: RX

PATENTS:
Patent 11654133 | Expires: Jun 16, 2039
Patent 7598279 | Expires: Oct 30, 2032